FAERS Safety Report 11564037 (Version 1)
Quarter: 2015Q3

REPORT INFORMATION
  Report Type: Other
  Country: DE (occurrence: DE)
  Receive Date: 20150928
  Receipt Date: 20150928
  Transmission Date: 20151125
  Serious: Yes (Hospitalization)
  Sender: FDA-Public Use
  Company Number: DE-MYLANLABS-2015M1031738

PATIENT

DRUGS (11)
  1. AMIODARONE [Suspect]
     Active Substance: AMIODARONE
     Indication: ATRIAL FIBRILLATION
     Dosage: 200 MG, TID (DAILY DOSE: 600 MG MILLGRAM(S) EVERY DAYS)
     Route: 048
     Dates: start: 20150723, end: 20150723
  2. DIGITOXIN 0,07 [Concomitant]
     Dosage: 1 DF, UNK (MONTAG-FREITAG, SA/SO PAUSE)
  3. MAGNESIUM KAUTABLETTE [Concomitant]
     Dosage: 100 MG, TID (DAILY DOSE: 300 MG MILLGRAM(S) EVERY DAYS)
  4. SYMBICORT 320/9 [Concomitant]
     Dosage: 1 DF, BID (DAILY DOSE: 2 DF DOSAGE FORM EVERY DAYS)
  5. METOPROLOL [Concomitant]
     Active Substance: METOPROLOL
     Dosage: 95 MG, BID (DAILY DOSE: 190 MG MILLGRAM(S) EVERY DAYS)
  6. TOREM [Concomitant]
     Active Substance: TORSEMIDE
     Dosage: 10 MG, UNK (DAILY DOSE: 20 MG MILLGRAM(S) EVERY 2 DAYS)
  7. ASPIRIN. [Concomitant]
     Active Substance: ASPIRIN
     Dosage: 100 MG, QD (DAILY DOSE: 100 MG MILLGRAM(S) EVERY DAYS)
  8. RAMIPRIL. [Concomitant]
     Active Substance: RAMIPRIL
     Dosage: 2.5 MG, QD (DAILY DOSE: 2.5 MG MILLGRAM(S) EVERY DAYS)
  9. PANTOZOL [Concomitant]
     Active Substance: PANTOPRAZOLE SODIUM
     Dosage: 20 MG, QD (DAILY DOSE: 20 MG MILLGRAM(S) EVERY DAYS)
  10. FALITHROM [Suspect]
     Active Substance: PHENPROCOUMON
     Indication: ATRIAL FIBRILLATION
     Dosage: 1 DF, QD (DAILY DOSE: 1 DF DOSAGE FORM EVERY DAYS)
     Route: 048
     Dates: end: 20150723
  11. SPIRIVA [Concomitant]
     Active Substance: TIOTROPIUM BROMIDE MONOHYDRATE
     Dosage: 18 ?G, QD (DAILY DOSE: 18 ?G MICROGRAM(S) EVERY DAYS)

REACTIONS (1)
  - Acute hepatic failure [Recovering/Resolving]

NARRATIVE: CASE EVENT DATE: 20150723
